FAERS Safety Report 9277649 (Version 1)
Quarter: 2013Q2

REPORT INFORMATION
  Report Type: Spontaneous
  Country: US (occurrence: None)
  Receive Date: 20130503
  Receipt Date: 20130503
  Transmission Date: 20140414
  Serious: Yes (Other)
  Sender: FDA-Public Use
  Company Number: None

PATIENT
  Age: 24 Year
  Sex: Female
  Weight: 75 kg

DRUGS (4)
  1. ZYRTEC [Suspect]
     Indication: MULTIPLE ALLERGIES
     Dosage: 1 YEAR DURATION OF USE
     Route: 048
  2. KARIVA [Concomitant]
  3. FLOVENT [Concomitant]
  4. NARATRIPTAN [Concomitant]

REACTIONS (3)
  - Pruritus generalised [None]
  - Erythema [None]
  - Therapy cessation [None]
